FAERS Safety Report 6393702-1 (Version None)
Quarter: 2009Q4

REPORT INFORMATION
  Report Type: 
  Country: None (occurrence: None)
  Receive Date: 20091008
  Receipt Date: 20090929
  Transmission Date: 20100525
  Serious: Yes (Hospitalization, Other)
  Sender: FDA-Public Use
  Company Number: JP-BAYER-200913593BYL

PATIENT
  Age: 61 Year
  Sex: Female
  Weight: 55 kg

DRUGS (6)
  1. NEXAVAR [Suspect]
     Indication: RENAL CELL CARCINOMA STAGE IV
     Dosage: UNIT DOSE: 200 MG
     Route: 048
     Dates: start: 20080811
  2. NEXAVAR [Suspect]
     Dosage: UNIT DOSE: 200 MG
     Route: 048
     Dates: start: 20080825, end: 20090301
  3. NEXAVAR [Suspect]
     Dosage: TOTAL DAILY DOSE: 800 MG  UNIT DOSE: 200 MG
     Route: 048
     Dates: start: 20090302
  4. URSO 250 [Concomitant]
     Route: 048
     Dates: start: 20080825, end: 20090608
  5. ALLEGRA [Concomitant]
     Route: 048
     Dates: start: 20090217, end: 20090608
  6. ZOMETA [Concomitant]
     Route: 065

REACTIONS (5)
  - ALOPECIA [None]
  - DIARRHOEA [None]
  - FRACTURE [None]
  - NERVE COMPRESSION [None]
  - PALMAR-PLANTAR ERYTHRODYSAESTHESIA SYNDROME [None]
